FAERS Safety Report 23644500 (Version 1)
Quarter: 2024Q1

REPORT INFORMATION
  Report Type: Spontaneous
  Country: US (occurrence: US)
  Receive Date: 20240318
  Receipt Date: 20240318
  Transmission Date: 20240410
  Serious: Yes (Other)
  Sender: FDA-Public Use
  Company Number: US-009507513-2403USA005201

PATIENT
  Sex: Female

DRUGS (2)
  1. ZINPLAVA [Suspect]
     Active Substance: BEZLOTOXUMAB
     Dosage: 1 INJECTION
     Dates: start: 20240209
  2. DIFICID [Suspect]
     Active Substance: FIDAXOMICIN
     Dosage: 1 TABLET/BID 10 DAYS
     Route: 048

REACTIONS (1)
  - Clostridium difficile infection [Not Recovered/Not Resolved]

NARRATIVE: CASE EVENT DATE: 20240301
